FAERS Safety Report 5390933-4 (Version None)
Quarter: 2007Q3

REPORT INFORMATION
  Report Type: 
  Country: None (occurrence: None)
  Receive Date: 20070718
  Receipt Date: 20070710
  Transmission Date: 20080115
  Serious: Yes (Death, Other)
  Sender: FDA-Public Use
  Company Number: JP-ABBOTT-07P-087-0374304-00

PATIENT
  Sex: Male

DRUGS (2)
  1. CLARITHROMYCIN [Suspect]
     Indication: COUGH
     Route: 048
  2. LYSOZYME HYDROCHLORIDE [Suspect]
     Indication: COUGH
     Route: 048

REACTIONS (5)
  - CARDIAC HYPERTROPHY [None]
  - DRUG ERUPTION [None]
  - MALAISE [None]
  - PULMONARY OEDEMA [None]
  - RASH MACULAR [None]
